FAERS Safety Report 16211176 (Version 1)
Quarter: 2019Q2

REPORT INFORMATION
  Report Type: Spontaneous
  Country: US (occurrence: US)
  Receive Date: 20190314
  Receipt Date: 20190314
  Transmission Date: 20190711
  Serious: Yes (Hospitalization)
  Sender: FDA-Public Use
  Company Number: None

PATIENT
  Age: 27 Year
  Sex: Male
  Weight: 127 kg

DRUGS (12)
  1. GEMCITABINE [Suspect]
     Active Substance: GEMCITABINE\GEMCITABINE HYDROCHLORIDE
     Indication: OSTEOSARCOMA
     Dosage: OTHER FREQUENCY:DAY 1 + DAY 8;?
     Route: 042
  2. MAGNESIUM [Concomitant]
     Active Substance: MAGNESIUM
  3. TYLENOL [Concomitant]
     Active Substance: ACETAMINOPHEN
  4. DOCUSATE SODIUM-SENNA [Concomitant]
  5. MULTIVITAMIN [Concomitant]
     Active Substance: VITAMINS
  6. PACKED RBCS [Concomitant]
  7. PROCHLORPERAZINE. [Concomitant]
     Active Substance: PROCHLORPERAZINE
  8. COLCHICINE. [Concomitant]
     Active Substance: COLCHICINE
  9. MIRALAX [Concomitant]
     Active Substance: POLYETHYLENE GLYCOL 3350
  10. SINAKOT [Concomitant]
  11. GEMCITABINE [Suspect]
     Active Substance: GEMCITABINE\GEMCITABINE HYDROCHLORIDE
     Dosage: ?          OTHER FREQUENCY:DAY 8-14;?
     Route: 048
  12. MORPHINE IR [Concomitant]
     Active Substance: MORPHINE

REACTIONS (3)
  - Pericardial effusion [None]
  - Dyspnoea [None]
  - Swelling face [None]

NARRATIVE: CASE EVENT DATE: 20190226
